FAERS Safety Report 5309406-X (Version None)
Quarter: 2007Q2

REPORT INFORMATION
  Report Type: 
  Country: None (occurrence: None)
  Receive Date: 20070425
  Receipt Date: 20070425
  Transmission Date: 20071010
  Serious: Yes (Hospitalization, Disabling, Other)
  Sender: FDA-Public Use
  Company Number: None

PATIENT
  Age: 20 Year
  Sex: Male

DRUGS (1)
  1. RECOMBINENT FACTOR VII [Suspect]
     Indication: HAEMORRHAGE
     Dosage: 7.5 MG BOLUS X 2 IV
     Route: 040

REACTIONS (1)
  - CEREBROVASCULAR ACCIDENT [None]
